FAERS Safety Report 16040096 (Version 1)
Quarter: 2019Q1

REPORT INFORMATION
  Report Type: Spontaneous
  Country: US (occurrence: US)
  Receive Date: 20190206
  Receipt Date: 20190206
  Transmission Date: 20190418
  Serious: No
  Sender: FDA-Public Use
  Company Number: None

PATIENT
  Age: 33 Year
  Sex: Male

DRUGS (1)
  1. MYCOPHENOLIC TAB DR 180MG [Suspect]
     Active Substance: MYCOPHENOLIC ACID
     Indication: RENAL TRANSPLANT
     Dates: start: 2013

REACTIONS (3)
  - Insurance issue [None]
  - Incorrect dose administered [None]
  - Therapy cessation [None]

NARRATIVE: CASE EVENT DATE: 20190204
